FAERS Safety Report 9526626 (Version 1)
Quarter: 2013Q3

REPORT INFORMATION
  Report Type: Spontaneous
  Country: DE (occurrence: DE)
  Receive Date: 20130916
  Receipt Date: 20130916
  Transmission Date: 20140515
  Serious: Yes (Other)
  Sender: FDA-Public Use
  Company Number: GXKR2013DE003049

PATIENT
  Sex: Female
  Weight: 80 kg

DRUGS (1)
  1. OMEP [Suspect]
     Indication: DYSPEPSIA
     Dosage: 20 MG, ONCE/SINGLE (IN THE MORNING; FASTING)
     Route: 048
     Dates: start: 20130829, end: 20130829

REACTIONS (3)
  - Haematochezia [Recovered/Resolved]
  - Pain in extremity [Recovered/Resolved]
  - Diarrhoea [Recovered/Resolved]
